FAERS Safety Report 6445836-0 (Version None)
Quarter: 2009Q4

REPORT INFORMATION
  Report Type: 
  Country: None (occurrence: None)
  Receive Date: 20091119
  Receipt Date: 20091111
  Transmission Date: 20100525
  Serious: Yes (Hospitalization)
  Sender: FDA-Public Use
  Company Number: US-BIOGENIDEC-2009BI036593

PATIENT
  Age: 53 Year
  Sex: Male
  Weight: 73 kg

DRUGS (3)
  1. AVONEX [Suspect]
     Indication: MULTIPLE SCLEROSIS
     Route: 030
     Dates: start: 19970101, end: 20010101
  2. AVONEX [Suspect]
     Route: 030
     Dates: start: 20020101, end: 20030101
  3. AVONEX [Suspect]
     Route: 030
     Dates: start: 20030101

REACTIONS (8)
  - ARTHRALGIA [None]
  - BONE PAIN [None]
  - FACIAL PAIN [None]
  - INFLUENZA LIKE ILLNESS [None]
  - INJURY ASSOCIATED WITH DEVICE [None]
  - NEPHROLITHIASIS [None]
  - NERVOUS SYSTEM DISORDER [None]
  - PAIN IN EXTREMITY [None]
